FAERS Safety Report 21812766 (Version 1)
Quarter: 2023Q1

REPORT INFORMATION
  Report Type: Spontaneous
  Country: US (occurrence: US)
  Receive Date: 20230103
  Receipt Date: 20230103
  Transmission Date: 20230417
  Serious: No
  Sender: FDA-Public Use
  Company Number: US-GILEAD-2022-0611097

PATIENT
  Age: 72 Year
  Sex: Female
  Weight: 32 kg

DRUGS (2)
  1. VEKLURY [Suspect]
     Active Substance: REMDESIVIR
     Indication: Product used for unknown indication
     Dosage: 160 MG (LOADING DOSE)
     Route: 065
  2. VEKLURY [Suspect]
     Active Substance: REMDESIVIR
     Dosage: 80 MG (MAINTENANCE DOSE)
     Route: 065

REACTIONS (1)
  - Off label use [Unknown]
